FAERS Safety Report 5337922-3 (Version None)
Quarter: 2007Q2

REPORT INFORMATION
  Report Type: 
  Country: None (occurrence: None)
  Receive Date: 20070327
  Receipt Date: 20070118
  Transmission Date: 20071010
  Serious: No
  Sender: FDA-Public Use
  Company Number: 227862

PATIENT
  Age: 73 Year
  Sex: Female
  Weight: 59 kg

DRUGS (1)
  1. AVASTIN [Suspect]
     Indication: BREAST CANCER METASTATIC
     Dosage: Q2W, INTRAVENOUS
     Route: 042

REACTIONS (1)
  - CARBOHYDRATE ANTIGEN 15-3 INCREASED [None]
